FAERS Safety Report 4692772-6 (Version None)
Quarter: 2005Q2

REPORT INFORMATION
  Report Type: 
  Country: None (occurrence: None)
  Receive Date: 20050617
  Receipt Date: 20050413
  Transmission Date: 20051028
  Serious: Yes (Hospitalization, Other)
  Sender: FDA-Public Use
  Company Number: PHNU2005DE01629

PATIENT
  Age: 73 Year
  Sex: Male
  Weight: 72 kg

DRUGS (1)
  1. ZOMETA [Suspect]
     Indication: METASTASES TO BONE
     Dosage: 4 MG, ONCE/SINGLE
     Route: 042
     Dates: start: 20050124, end: 20050124

REACTIONS (19)
  - ARTHRALGIA [None]
  - ASTHENIA [None]
  - BACTERAEMIA [None]
  - BRADYCARDIA [None]
  - CENTRAL VENOUS CATHETERISATION [None]
  - CHILLS [None]
  - CIRCULATORY COLLAPSE [None]
  - DYSPNOEA [None]
  - ELECTROCARDIOGRAM QT PROLONGED [None]
  - GOUT [None]
  - HYPOCALCAEMIA [None]
  - HYPOKALAEMIA [None]
  - MUSCLE SPASMS [None]
  - PARAESTHESIA [None]
  - PARANEOPLASTIC SYNDROME [None]
  - PYREXIA [None]
  - STAPHYLOCOCCAL BACTERAEMIA [None]
  - TETANY [None]
  - VENTRICULAR ARRHYTHMIA [None]
